FAERS Safety Report 13654366 (Version 1)
Quarter: 2017Q2

REPORT INFORMATION
  Report Type: Spontaneous
  Country: US (occurrence: US)
  Receive Date: 20170615
  Receipt Date: 20170615
  Transmission Date: 20170830
  Serious: Yes (Other)
  Sender: FDA-Public Use
  Company Number: US-ACCORD-051174

PATIENT
  Sex: Male

DRUGS (2)
  1. CETUXIMAB. [Concomitant]
     Active Substance: CETUXIMAB
  2. CISPLATIN ACCORD [Suspect]
     Active Substance: CISPLATIN
     Indication: BLADDER CANCER

REACTIONS (2)
  - Anaemia [Unknown]
  - Renal impairment [Unknown]
